FAERS Safety Report 21289531 (Version 1)
Quarter: 2022Q3

REPORT INFORMATION
  Report Type: Spontaneous
  Country: FR (occurrence: FR)
  Receive Date: 20220902
  Receipt Date: 20220902
  Transmission Date: 20221027
  Serious: Yes (Hospitalization)
  Sender: FDA-Public Use
  Company Number: None

PATIENT
  Age: 92 Year
  Sex: Female
  Weight: 47 kg

DRUGS (2)
  1. AMOXICILLIN [Suspect]
     Active Substance: AMOXICILLIN
     Indication: Pneumonia
     Dosage: DURATION : 7 DAYS, UNIT DOSE: 1 DF, AMOXICILLINE
     Dates: start: 20220714, end: 20220721
  2. PAXLOVID [Suspect]
     Active Substance: NIRMATRELVIR\RITONAVIR
     Indication: COVID-19 treatment
     Dosage: DURATION : 6 DAYS, UNIT DOSE: 1 DF, PAXLOVID 150 MG + 100 MG
     Dates: start: 20220714, end: 20220720

REACTIONS (2)
  - Acute kidney injury [Not Recovered/Not Resolved]
  - Rash papular [Not Recovered/Not Resolved]

NARRATIVE: CASE EVENT DATE: 20220804
